FAERS Safety Report 7547150-9 (Version None)
Quarter: 2011Q2

REPORT INFORMATION
  Report Type: 
  Country: None (occurrence: None)
  Receive Date: 20110524
  Receipt Date: 20110128
  Transmission Date: 20111010
  Serious: No
  Sender: FDA-Public Use
  Company Number: 026541

PATIENT
  Sex: Female
  Weight: 71.7 kg

DRUGS (6)
  1. CIMZIA [Suspect]
     Indication: CROHN'S DISEASE
     Dosage: (400 MG 1X/2 WEEKS, 400 MG 2 SHOTS SUBCUTANEOUS) ; (SUBCUTANEOUS)
     Route: 058
     Dates: start: 20101110, end: 20101130
  2. MUPIROCIN [Concomitant]
  3. DARVOCET-N 50 [Concomitant]
  4. METHOTREXATE [Concomitant]
  5. TRIAMCINOLONE [Concomitant]
  6. FOLIC ACID [Concomitant]

REACTIONS (1)
  - RASH PRURITIC [None]
